FAERS Safety Report 15476555 (Version 1)
Quarter: 2018Q4

REPORT INFORMATION
  Report Type: Spontaneous
  Country: PT (occurrence: PT)
  Receive Date: 20181009
  Receipt Date: 20181009
  Transmission Date: 20190205
  Serious: Yes (Hospitalization, Other)
  Sender: FDA-Public Use
  Company Number: PT-TEVA-2018-PT-962412

PATIENT
  Age: 72 Year

DRUGS (5)
  1. XOTERNA BREEZHALER [Concomitant]
     Active Substance: GLYCOPYRRONIUM\INDACATEROL
  2. OLSAR 20 MG [Concomitant]
     Active Substance: OLMESARTAN MEDOXOMIL
  3. AMOXICILINA + ?CIDO CLAVUL?NICO [Suspect]
     Active Substance: AMOXICILLIN\CLAVULANIC ACID
     Indication: TONSILLITIS
     Dosage: 1 HR 12H / 12H
     Route: 048
     Dates: start: 20180626, end: 20180626
  4. LORAZEPAM. [Concomitant]
     Active Substance: LORAZEPAM
  5. ATORVASTATIN [Concomitant]
     Active Substance: ATORVASTATIN
     Route: 048

REACTIONS (5)
  - Dyspnoea [Recovered/Resolved]
  - Pruritus generalised [Recovered/Resolved]
  - Generalised oedema [Recovered/Resolved]
  - Flushing [Recovered/Resolved]
  - Malaise [Recovered/Resolved]

NARRATIVE: CASE EVENT DATE: 20180626
